FAERS Safety Report 5297856-X (Version None)
Quarter: 2007Q2

REPORT INFORMATION
  Report Type: 
  Country: None (occurrence: None)
  Receive Date: 20070416
  Receipt Date: 20070403
  Transmission Date: 20071010
  Serious: No
  Sender: FDA-Public Use
  Company Number: SE-ELI_LILLY_AND_COMPANY-SE200702000028

PATIENT
  Age: 65 Year
  Sex: Female

DRUGS (4)
  1. CYMBALTA [Suspect]
     Indication: DEPRESSION
     Dosage: 30 MG, 2/D
     Route: 048
     Dates: start: 20061212
  2. VENTOLIN [Concomitant]
     Indication: ASTHMA
     Dosage: 0.2 MG, AS NEEDED
     Route: 055
  3. BECOTIDE [Concomitant]
     Indication: ASTHMA
     Dosage: 0.2 MG, 4/D
     Route: 055
  4. OMEPRAZOLE [Concomitant]
     Indication: NAUSEA

REACTIONS (2)
  - ASTHMA [None]
  - PAIN [None]
